FAERS Safety Report 19015038 (Version 1)
Quarter: 2021Q1

REPORT INFORMATION
  Report Type: Spontaneous
  Country: ES (occurrence: ES)
  Receive Date: 20210316
  Receipt Date: 20210316
  Transmission Date: 20210420
  Serious: Yes (Life-Threatening, Hospitalization)
  Sender: FDA-Public Use
  Company Number: ES-PFIZER INC-2021261464

PATIENT
  Age: 58 Year
  Sex: Female

DRUGS (3)
  1. CLONAZEPAM. [Interacting]
     Active Substance: CLONAZEPAM
     Indication: SUICIDAL IDEATION
     Dosage: 30 TABLETS OF 60 MG SINGLE
     Route: 048
     Dates: start: 20210302, end: 20210302
  2. PRISTIQ EXTENDED?RELEASE [Suspect]
     Active Substance: DESVENLAFAXINE SUCCINATE
     Indication: SUICIDE ATTEMPT
     Dosage: 2.8 G SINGLE
     Route: 048
     Dates: start: 20210202, end: 20210302
  3. QUETIAPINA ALTER [Interacting]
     Active Substance: QUETIAPINE FUMARATE
     Indication: SUICIDE ATTEMPT
     Dosage: 6 G SINGLE
     Route: 048
     Dates: start: 20210302, end: 20210302

REACTIONS (3)
  - Suicide attempt [Unknown]
  - Loss of consciousness [Recovering/Resolving]
  - Drug interaction [Unknown]

NARRATIVE: CASE EVENT DATE: 20210302
